FAERS Safety Report 10315056 (Version 2)
Quarter: 2014Q3

REPORT INFORMATION
  Report Type: Spontaneous
  Country: VE (occurrence: VE)
  Receive Date: 20140718
  Receipt Date: 20140804
  Transmission Date: 20150326
  Serious: Yes (Hospitalization, Disabling)
  Sender: FDA-Public Use
  Company Number: PHHY2014VE088108

PATIENT
  Age: 42 Year
  Sex: Male

DRUGS (2)
  1. TEGRETOL [Suspect]
     Active Substance: CARBAMAZEPINE
     Indication: EPILEPSY
     Dosage: 1600 MG, DAILY
     Route: 048
     Dates: start: 1994, end: 20140716
  2. TEGRETOL [Suspect]
     Active Substance: CARBAMAZEPINE
     Dosage: 1600 MG, DAILY
     Route: 048

REACTIONS (4)
  - Blindness [Not Recovered/Not Resolved]
  - Epilepsy [Not Recovered/Not Resolved]
  - Chemical injury [Not Recovered/Not Resolved]
  - Accident at work [Not Recovered/Not Resolved]

NARRATIVE: CASE EVENT DATE: 20060119
